FAERS Safety Report 9880848 (Version 2)
Quarter: 2014Q1

REPORT INFORMATION
  Report Type: Spontaneous
  Country: US (occurrence: US)
  Receive Date: 20140207
  Receipt Date: 20140319
  Transmission Date: 20141002
  Serious: Yes (Other)
  Sender: FDA-Public Use
  Company Number: US-PFIZER INC-2014035461

PATIENT
  Age: 47 Year
  Sex: Female
  Weight: 83.9 kg

DRUGS (4)
  1. GABAPENTIN [Suspect]
     Indication: DIABETIC NEUROPATHY
     Dosage: 800 MG, 4X/DAY
  2. GABAPENTIN [Suspect]
     Dosage: 800 MG, 4X/DAY
  3. LANTUS [Concomitant]
     Indication: DIABETES MELLITUS
     Dosage: 40 IU, 1X/DAY
  4. HUMULIN N [Concomitant]
     Indication: DIABETES MELLITUS
     Dosage: 5 IU, 3X/DAY

REACTIONS (1)
  - Cerebrovascular accident [Unknown]
